FAERS Safety Report 7571948-4 (Version None)
Quarter: 2011Q2

REPORT INFORMATION
  Report Type: 
  Country: None (occurrence: None)
  Receive Date: 20110624
  Receipt Date: 20110309
  Transmission Date: 20111010
  Serious: No
  Sender: FDA-Public Use
  Company Number: A0917362A

PATIENT
  Age: 68 Year
  Sex: Female

DRUGS (4)
  1. VERAMYST [Suspect]
     Indication: MULTIPLE ALLERGIES
     Dosage: 1PUFF PER DAY
     Route: 045
     Dates: start: 20090101
  2. ALLEGRA D 24 HOUR [Concomitant]
  3. ATROVENT SPRAY [Concomitant]
  4. AMOXICILLIN [Concomitant]

REACTIONS (3)
  - SINUSITIS [None]
  - PRODUCT QUALITY ISSUE [None]
  - EPISTAXIS [None]
